FAERS Safety Report 7757499-2 (Version None)
Quarter: 2011Q3

REPORT INFORMATION
  Report Type: 
  Country: None (occurrence: None)
  Receive Date: 20110916
  Receipt Date: 20110908
  Transmission Date: 20111222
  Serious: Yes (Hospitalization)
  Sender: FDA-Public Use
  Company Number: CA-US-EMD SERONO, INC.-7081821

PATIENT
  Sex: Male

DRUGS (3)
  1. SOLU-MEDROL [Concomitant]
     Indication: MULTIPLE SCLEROSIS RELAPSE
  2. REBIF [Suspect]
     Indication: MULTIPLE SCLEROSIS
     Dosage: 20/50 TITRATION
     Route: 058
     Dates: start: 20110815
  3. REBIF [Suspect]
     Route: 058
     Dates: end: 20110901

REACTIONS (4)
  - MULTIPLE SCLEROSIS RELAPSE [None]
  - CENTRAL NERVOUS SYSTEM LESION [None]
  - SENSORY LOSS [None]
  - DYSURIA [None]
